FAERS Safety Report 5171653-8 (Version None)
Quarter: 2006Q4

REPORT INFORMATION
  Report Type: 
  Country: None (occurrence: None)
  Receive Date: 20061205
  Receipt Date: 20061128
  Transmission Date: 20070319
  Serious: No
  Sender: FDA-Public Use
  Company Number: E2090-00140-SPO-US

PATIENT
  Age: 35 Year
  Sex: Male

DRUGS (1)
  1. ZONEGRAN [Suspect]
     Dosage: ORAL
     Route: 048

REACTIONS (1)
  - VANISHING BILE DUCT SYNDROME [None]
